FAERS Safety Report 9777688 (Version 1)
Quarter: 2013Q4

REPORT INFORMATION
  Report Type: Report from Study
  Country: IT (occurrence: IT)
  Receive Date: 20131223
  Receipt Date: 20131223
  Transmission Date: 20140711
  Serious: Yes (Other)
  Sender: FDA-Public Use
  Company Number: IT-ROCHE-1319022

PATIENT
  Sex: Female

DRUGS (7)
  1. TRASTUZUMAB [Suspect]
     Indication: BREAST CANCER
     Dosage: 90-MIN INFUSION LOADING DOSE
     Route: 042
  2. TRASTUZUMAB [Suspect]
     Dosage: 30-MIN INFUSION WEEKLY, FOR 16 WEEKS.
     Route: 042
  3. TRASTUZUMAB [Suspect]
     Dosage: TRASTUZUMAB 8 MG/KG IV 90-MIN INFUSION LOADING DOSE, THEN 6 MG/KG IV 90-MIN INFUSION EVERY 3 WEEKS,
     Route: 042
  4. TRASTUZUMAB [Suspect]
     Dosage: 90-MIN INFUSION EVERY 3 WEEKS, FOR 12 CYCLES, STARTING BETWEEN 4 AND 5 WEEKS AFTER SURGERY
     Route: 042
  5. DOXORUBICIN [Suspect]
     Indication: BREAST CANCER
     Dosage: FOUR CYCLES OF 1-H INFUSION EVERY 3 WEEKS
     Route: 042
  6. CYCLOPHOSPHAMIDE [Suspect]
     Indication: BREAST CANCER
     Dosage: FOUR CYCLES
     Route: 042
  7. DOCETAXEL [Suspect]
     Indication: BREAST CANCER
     Dosage: 12 CYCLES OF 1-H INFUSION WEEKLY
     Route: 042

REACTIONS (9)
  - Haematotoxicity [Unknown]
  - Bone marrow toxicity [Unknown]
  - Nausea [Unknown]
  - Vomiting [Unknown]
  - Hepatobiliary disease [Unknown]
  - Pancreatic disorder [Unknown]
  - Metabolic disorder [Unknown]
  - Pleural effusion [Recovered/Resolved]
  - Febrile neutropenia [Unknown]
